FAERS Safety Report 11619635 (Version 1)
Quarter: 2015Q4

REPORT INFORMATION
  Report Type: Spontaneous
  Country: CH (occurrence: CH)
  Receive Date: 20151012
  Receipt Date: 20151012
  Transmission Date: 20160304
  Serious: Yes (Hospitalization)
  Sender: FDA-Public Use
  Company Number: CH-TEVA-598539ISR

PATIENT
  Age: 56 Year
  Sex: Male

DRUGS (6)
  1. OLANZAPIN [Suspect]
     Active Substance: OLANZAPINE
     Indication: HUNTINGTON^S DISEASE
     Dosage: 2.5 MILLIGRAM DAILY;
     Route: 048
     Dates: start: 2006
  2. MIANSERIN [Suspect]
     Active Substance: MIANSERIN
     Indication: HUNTINGTON^S DISEASE
     Dosage: 30 MILLIGRAM DAILY; CONTINUING, PREVIOUSLY GIVEN LONG-TERM (SEVERAL YEARS), IN THE EVENING
     Route: 048
  3. DAFALGAN [Concomitant]
     Active Substance: ACETAMINOPHEN
     Indication: PAIN
     Dosage: 2000 MILLIGRAM DAILY; LONG TERM DURATION, IN THE MORNING AND IN THE EVENING
     Route: 048
  4. OLANZAPIN [Suspect]
     Active Substance: OLANZAPINE
     Dosage: 5 MILLIGRAM DAILY; DOSE CHANGED ON AN UNSPECIFIED DATE
     Route: 048
     Dates: end: 201407
  5. OLANZAPIN [Suspect]
     Active Substance: OLANZAPINE
     Dosage: 7.5 MILLIGRAM DAILY;
     Route: 048
     Dates: start: 201407, end: 201507
  6. FEXOFENADINE [Concomitant]
     Active Substance: FEXOFENADINE\FEXOFENADINE HYDROCHLORIDE
     Indication: SEASONAL ALLERGY
     Dosage: 120 MILLIGRAM DAILY; LONG TERM DURATION, IN THE MORNING
     Route: 048

REACTIONS (3)
  - Hyperprolactinaemia [Recovering/Resolving]
  - Generalised tonic-clonic seizure [Recovered/Resolved]
  - Prolactinoma [Recovering/Resolving]

NARRATIVE: CASE EVENT DATE: 20150626
